FAERS Safety Report 17005679 (Version 1)
Quarter: 2019Q4

REPORT INFORMATION
  Report Type: Spontaneous
  Country: FI (occurrence: FI)
  Receive Date: 20191107
  Receipt Date: 20191107
  Transmission Date: 20200122
  Serious: Yes (Hospitalization)
  Sender: FDA-Public Use
  Company Number: FI-ROCHE-2401374

PATIENT
  Age: 70 Year
  Sex: Male

DRUGS (5)
  1. PREDNISOLONE. [Concomitant]
     Active Substance: PREDNISOLONE
     Indication: TEMPORAL ARTERITIS
     Route: 065
     Dates: start: 201812
  2. TREXAN [METHOTREXATE] [Concomitant]
     Indication: TEMPORAL ARTERITIS
     Route: 065
     Dates: start: 201812
  3. MADOPAR [Concomitant]
     Active Substance: BENSERAZIDE HYDROCHLORIDE\LEVODOPA
  4. ROACTEMRA [Suspect]
     Active Substance: TOCILIZUMAB
     Indication: TEMPORAL ARTERITIS
     Route: 042
     Dates: start: 20190207, end: 20190628
  5. CORTISONE [Concomitant]
     Active Substance: CORTISONE
     Indication: TEMPORAL ARTERITIS
     Route: 048

REACTIONS (5)
  - Malaise [Unknown]
  - Off label use [Unknown]
  - Umbilical hernia [Recovered/Resolved]
  - Abdominal pain upper [Recovered/Resolved]
  - Intentional product use issue [Unknown]

NARRATIVE: CASE EVENT DATE: 20190629
